FAERS Safety Report 4498982-5 (Version None)
Quarter: 2004Q4

REPORT INFORMATION
  Report Type: 
  Country: None (occurrence: None)
  Receive Date: 20041110
  Receipt Date: 20041110
  Transmission Date: 20050328
  Serious: No
  Sender: FDA-Public Use
  Company Number: None

PATIENT
  Sex: Male

DRUGS (2)
  1. EPIRUBICIN [Suspect]
     Dosage: 5000 MG X 4 D IV
     Route: 042
  2. IFOSFAMIDE [Suspect]
     Dosage: 60 MG X 4 D IV
     Route: 042

REACTIONS (6)
  - DEHYDRATION [None]
  - DIARRHOEA [None]
  - FEELING ABNORMAL [None]
  - HYPOKALAEMIA [None]
  - HYPONATRAEMIA [None]
  - STOMATITIS [None]
